FAERS Safety Report 9665038 (Version 2)
Quarter: 2014Q4

REPORT INFORMATION
  Report Type: Report from Study
  Country: CO (occurrence: CO)
  Receive Date: 20131101
  Receipt Date: 20141024
  Transmission Date: 20150529
  Serious: Yes (Other)
  Sender: FDA-Public Use
  Company Number: CO-ROCHE-1297048

PATIENT
  Age: 79 Year
  Sex: Female
  Weight: 73 kg

DRUGS (1)
  1. LUCENTIS [Suspect]
     Active Substance: RANIBIZUMAB
     Indication: MACULOPATHY
     Route: 050

REACTIONS (4)
  - Off label use [Unknown]
  - Cataract [Unknown]
  - Blindness unilateral [Unknown]
  - Inappropriate schedule of drug administration [Unknown]
